FAERS Safety Report 20326478 (Version 1)
Quarter: 2022Q1

REPORT INFORMATION
  Report Type: Spontaneous
  Country: US (occurrence: US)
  Receive Date: 20220112
  Receipt Date: 20220112
  Transmission Date: 20220423
  Serious: No
  Sender: FDA-Public Use
  Company Number: US-CELGENE-USA-20220101774

PATIENT
  Age: 90 Year
  Sex: Female

DRUGS (1)
  1. THALOMID [Suspect]
     Active Substance: THALIDOMIDE
     Indication: Myelofibrosis
     Dosage: 50 MILLIGRAM
     Route: 048
     Dates: start: 20210912

REACTIONS (4)
  - Dysuria [Unknown]
  - Fall [Unknown]
  - Scratch [Unknown]
  - Dizziness [Unknown]

NARRATIVE: CASE EVENT DATE: 20220104
